FAERS Safety Report 18628471 (Version 11)
Quarter: 2025Q3

REPORT INFORMATION
  Report Type: Report from Study
  Country: CO (occurrence: CO)
  Receive Date: 20201217
  Receipt Date: 20250717
  Transmission Date: 20251020
  Serious: Yes (Hospitalization, Other)
  Sender: TAKEDA
  Company Number: CO-TAKEDA-2020TUS058228

PATIENT
  Age: 67 Year
  Sex: Male
  Weight: 50 kg

DRUGS (2)
  1. VEDOLIZUMAB [Suspect]
     Active Substance: VEDOLIZUMAB
     Indication: Colitis ulcerative
     Dates: start: 20201023, end: 20201109
  2. VEDOLIZUMAB [Suspect]
     Active Substance: VEDOLIZUMAB

REACTIONS (16)
  - Hernia [Unknown]
  - Tuberculosis [Not Recovered/Not Resolved]
  - Medication error [Unknown]
  - Malaise [Unknown]
  - Weight decreased [Unknown]
  - Pain [Unknown]
  - Diarrhoea [Unknown]
  - Body height decreased [Unknown]
  - Drug ineffective [Unknown]
  - Rhinorrhoea [Unknown]
  - Abdominal pain [Unknown]
  - Decreased appetite [Unknown]
  - Influenza [Unknown]
  - Oropharyngeal pain [Unknown]
  - Pyrexia [Unknown]
  - Cough [Unknown]

NARRATIVE: CASE EVENT DATE: 20201207
